FAERS Safety Report 9918094 (Version 2)
Quarter: 2014Q1

REPORT INFORMATION
  Report Type: Spontaneous
  Country: US (occurrence: US)
  Receive Date: 20140223
  Receipt Date: 20140223
  Transmission Date: 20141002
  Serious: No
  Sender: FDA-Public Use
  Company Number: US-ALLERGAN-1315378US

PATIENT
  Age: 57 Year
  Sex: Male

DRUGS (5)
  1. TAZORAC GEL 0.1% [Suspect]
     Indication: ACNE
     Dosage: UNK
     Route: 061
     Dates: start: 201309, end: 201309
  2. BENZOYL PEROXIDE [Concomitant]
     Indication: THERAPEUTIC SKIN CARE TOPICAL
     Route: 061
  3. MOISTURIZER NOS [Concomitant]
     Indication: PRODUCT USED FOR UNKNOWN INDICATION
     Route: 061
  4. TRIAMCINOLONE [Concomitant]
     Indication: SEBORRHOEA
     Dosage: UNK
     Route: 061
  5. MINOCYCLINE [Concomitant]
     Indication: ACNE
     Dosage: UNK
     Route: 048
     Dates: start: 201309

REACTIONS (8)
  - Rash erythematous [Recovering/Resolving]
  - Rash papular [Recovering/Resolving]
  - Rash pruritic [Recovering/Resolving]
  - Application site erythema [Recovering/Resolving]
  - Rash [Recovering/Resolving]
  - Insomnia [Recovering/Resolving]
  - Drug interaction [Not Recovered/Not Resolved]
  - Chemical burn of skin [Not Recovered/Not Resolved]
